FAERS Safety Report 9426588 (Version 1)
Quarter: 2013Q3

REPORT INFORMATION
  Report Type: Spontaneous
  Country: US (occurrence: US)
  Receive Date: 20130730
  Receipt Date: 20130730
  Transmission Date: 20140515
  Serious: No
  Sender: FDA-Public Use
  Company Number: US-PFIZER INC-2013219413

PATIENT
  Age: 77 Year
  Sex: Male

DRUGS (3)
  1. PROTONIX [Suspect]
     Indication: GASTRIC DISORDER
     Dosage: 40 MG, DAILY
  2. PROTONIX [Suspect]
     Dosage: 20 MG, AS NEEDED
  3. COUMADIN [Concomitant]
     Dosage: 13 MG, DAILY

REACTIONS (2)
  - Insomnia [Unknown]
  - Extra dose administered [Unknown]
